FAERS Safety Report 23299272 (Version 2)
Quarter: 2024Q1

REPORT INFORMATION
  Report Type: Spontaneous
  Country: US (occurrence: US)
  Receive Date: 20231215
  Receipt Date: 20240314
  Transmission Date: 20240409
  Serious: Yes (Hospitalization)
  Sender: FDA-Public Use
  Company Number: US-BEH-2023166438

PATIENT
  Age: 4 Year
  Sex: Male

DRUGS (3)
  1. HIZENTRA [Suspect]
     Active Substance: HUMAN IMMUNOGLOBULIN G
     Indication: Immunodeficiency
     Dosage: 3 GRAM, QW
     Route: 058
     Dates: start: 202304
  2. LIDOCAINE [Concomitant]
     Active Substance: LIDOCAINE
  3. PRILOCAINE [Concomitant]
     Active Substance: PRILOCAINE

REACTIONS (4)
  - Gastrointestinal infection [Unknown]
  - Seizure [Unknown]
  - Upper respiratory tract infection [Unknown]
  - Gastrointestinal disorder [Unknown]

NARRATIVE: CASE EVENT DATE: 20231101
